FAERS Safety Report 6932606-X (Version None)
Quarter: 2010Q3

REPORT INFORMATION
  Report Type: 
  Country: None (occurrence: None)
  Receive Date: 20100819
  Receipt Date: 20100811
  Transmission Date: 20110219
  Serious: Yes (Other)
  Sender: FDA-Public Use
  Company Number: FR-ASTRAZENECA-2010SE38188

PATIENT
  Age: 23818 Day
  Sex: Female

DRUGS (9)
  1. NEXIUM [Suspect]
     Route: 042
     Dates: start: 20100721, end: 20100727
  2. CIPROFLOXACINE PANPHARMA [Suspect]
     Dosage: 400 MG / 200 ML, UNKNOWN DOSE AND FREQUENCY
     Route: 042
     Dates: start: 20100720, end: 20100727
  3. IMIPENEM AND CILASTATIN [Suspect]
     Dosage: 500 MG / 500 MG, UNKNOWN DOSE AND FREQUENCY
     Route: 042
     Dates: start: 20100712, end: 20100725
  4. DIAMOX SRC [Suspect]
     Route: 042
     Dates: start: 20100719, end: 20100722
  5. ZYVOX [Suspect]
     Dosage: 2 MG/ML, UNKNOWN DOSE AND FREQUENCY
     Route: 042
     Dates: start: 20100710, end: 20100723
  6. CELIPROLOL [Concomitant]
  7. LEVOTHYROXINE SODIUM [Concomitant]
  8. PRACTAZIN [Concomitant]
  9. DIOSMINE [Concomitant]

REACTIONS (2)
  - BLISTER [None]
  - RASH MACULO-PAPULAR [None]
